FAERS Safety Report 21244993 (Version 12)
Quarter: 2025Q2

REPORT INFORMATION
  Report Type: Report from Study
  Country: CA (occurrence: CA)
  Receive Date: 20220823
  Receipt Date: 20250521
  Transmission Date: 20250717
  Serious: Yes (Other)
  Sender: BAUSCH AND LOMB
  Company Number: CA-BAUSCH-BL-2020-009920

PATIENT
  Age: 24 Year
  Sex: Male

DRUGS (8)
  1. SILIQ [Suspect]
     Active Substance: BRODALUMAB
     Indication: Psoriasis
     Dosage: 210MG/1.5ML; WEEK 0- 19/MAR/2020, WEEK 1- 26/MAR/2020, WEEK 2- /APR/2020
     Route: 058
     Dates: start: 20200319, end: 202004
  2. SILIQ [Suspect]
     Active Substance: BRODALUMAB
     Dosage: 210MG/1.5ML; EVERY 2 WEEKS
     Route: 058
     Dates: start: 202004, end: 2021
  3. SILIQ [Suspect]
     Active Substance: BRODALUMAB
     Dosage: 210MG/1.5ML; EVERY 2 WEEKS
     Route: 058
     Dates: start: 2021, end: 2021
  4. SILIQ [Suspect]
     Active Substance: BRODALUMAB
     Dosage: 210MG/1.5ML; EVERY 2 WEEKS
     Route: 058
     Dates: start: 20211021
  5. SILIQ [Suspect]
     Active Substance: BRODALUMAB
     Dosage: ON HOLD NO DOSES SINCE MID-JULY 2022
     Route: 058
     Dates: start: 2022, end: 202207
  6. SILIQ [Suspect]
     Active Substance: BRODALUMAB
     Dosage: 210MG/1.5ML RE-INDUCTION WEEKLY
     Route: 058
     Dates: start: 2022, end: 202211
  7. SILIQ [Suspect]
     Active Substance: BRODALUMAB
     Dosage: 210MG/1.5ML RE-INDUCTION WEEKLY
     Route: 058
     Dates: start: 20230131, end: 2023
  8. SILIQ [Suspect]
     Active Substance: BRODALUMAB
     Dosage: 210MG/1.5ML, Q 2 WEEKS
     Route: 058
     Dates: start: 2023

REACTIONS (14)
  - Dependence [Unknown]
  - Psoriasis [Not Recovered/Not Resolved]
  - Disease recurrence [Not Recovered/Not Resolved]
  - Road traffic accident [Unknown]
  - Gait disturbance [Unknown]
  - Malaise [Unknown]
  - Somnolence [Unknown]
  - Injection site swelling [Recovered/Resolved]
  - Therapeutic product effect decreased [Unknown]
  - Wrong technique in product usage process [Unknown]
  - Product dose omission issue [Unknown]
  - Product temperature excursion issue [Unknown]
  - Therapy interrupted [Unknown]
  - Product distribution issue [Unknown]

NARRATIVE: CASE EVENT DATE: 20200101
